FAERS Safety Report 25778154 (Version 1)
Quarter: 2025Q3

REPORT INFORMATION
  Report Type: Spontaneous
  Country: US (occurrence: US)
  Receive Date: 20250909
  Receipt Date: 20250909
  Transmission Date: 20251021
  Serious: Yes (Life-Threatening, Hospitalization)
  Sender: MYLAN
  Company Number: US-MYLANLABS-2025M1075632

PATIENT
  Age: 25 Year
  Sex: Female

DRUGS (68)
  1. LEVETIRACETAM [Suspect]
     Active Substance: LEVETIRACETAM
     Indication: Status epilepticus
  2. LEVETIRACETAM [Suspect]
     Active Substance: LEVETIRACETAM
  3. LEVETIRACETAM [Suspect]
     Active Substance: LEVETIRACETAM
     Route: 065
  4. LEVETIRACETAM [Suspect]
     Active Substance: LEVETIRACETAM
     Route: 065
  5. LEVETIRACETAM [Suspect]
     Active Substance: LEVETIRACETAM
  6. LEVETIRACETAM [Suspect]
     Active Substance: LEVETIRACETAM
  7. LEVETIRACETAM [Suspect]
     Active Substance: LEVETIRACETAM
     Route: 065
  8. LEVETIRACETAM [Suspect]
     Active Substance: LEVETIRACETAM
     Route: 065
  9. LORAZEPAM [Suspect]
     Active Substance: LORAZEPAM
     Indication: Status epilepticus
  10. LORAZEPAM [Suspect]
     Active Substance: LORAZEPAM
  11. LORAZEPAM [Suspect]
     Active Substance: LORAZEPAM
     Route: 065
  12. LORAZEPAM [Suspect]
     Active Substance: LORAZEPAM
     Route: 065
  13. LORAZEPAM [Suspect]
     Active Substance: LORAZEPAM
  14. LORAZEPAM [Suspect]
     Active Substance: LORAZEPAM
  15. LORAZEPAM [Suspect]
     Active Substance: LORAZEPAM
     Route: 065
  16. LORAZEPAM [Suspect]
     Active Substance: LORAZEPAM
     Route: 065
  17. CLOBAZAM [Suspect]
     Active Substance: CLOBAZAM
     Indication: Status epilepticus
  18. CLOBAZAM [Suspect]
     Active Substance: CLOBAZAM
     Route: 048
  19. CLOBAZAM [Suspect]
     Active Substance: CLOBAZAM
     Route: 048
  20. CLOBAZAM [Suspect]
     Active Substance: CLOBAZAM
  21. MIDAZOLAM [Suspect]
     Active Substance: MIDAZOLAM
     Indication: Status epilepticus
  22. MIDAZOLAM [Suspect]
     Active Substance: MIDAZOLAM
  23. MIDAZOLAM [Suspect]
     Active Substance: MIDAZOLAM
     Route: 065
  24. MIDAZOLAM [Suspect]
     Active Substance: MIDAZOLAM
     Route: 065
  25. MIDAZOLAM [Suspect]
     Active Substance: MIDAZOLAM
  26. MIDAZOLAM [Suspect]
     Active Substance: MIDAZOLAM
  27. MIDAZOLAM [Suspect]
     Active Substance: MIDAZOLAM
     Route: 065
  28. MIDAZOLAM [Suspect]
     Active Substance: MIDAZOLAM
     Route: 065
  29. LAMOTRIGINE [Suspect]
     Active Substance: LAMOTRIGINE
     Indication: Status epilepticus
  30. LAMOTRIGINE [Suspect]
     Active Substance: LAMOTRIGINE
     Route: 065
  31. LAMOTRIGINE [Suspect]
     Active Substance: LAMOTRIGINE
     Route: 065
  32. LAMOTRIGINE [Suspect]
     Active Substance: LAMOTRIGINE
  33. PERAMPANEL [Suspect]
     Active Substance: PERAMPANEL
     Indication: Status epilepticus
  34. PERAMPANEL [Suspect]
     Active Substance: PERAMPANEL
     Route: 065
  35. PERAMPANEL [Suspect]
     Active Substance: PERAMPANEL
     Route: 065
  36. PERAMPANEL [Suspect]
     Active Substance: PERAMPANEL
  37. ARGININE [Concomitant]
     Active Substance: ARGININE
     Indication: MELAS syndrome
  38. ARGININE [Concomitant]
     Active Substance: ARGININE
     Route: 042
  39. ARGININE [Concomitant]
     Active Substance: ARGININE
     Route: 042
  40. ARGININE [Concomitant]
     Active Substance: ARGININE
  41. LEVOCARNITINE [Concomitant]
     Active Substance: LEVOCARNITINE
     Indication: Product used for unknown indication
  42. LEVOCARNITINE [Concomitant]
     Active Substance: LEVOCARNITINE
     Route: 065
  43. LEVOCARNITINE [Concomitant]
     Active Substance: LEVOCARNITINE
     Route: 065
  44. LEVOCARNITINE [Concomitant]
     Active Substance: LEVOCARNITINE
  45. RIBOFLAVIN [Concomitant]
     Active Substance: RIBOFLAVIN
     Indication: Product used for unknown indication
  46. RIBOFLAVIN [Concomitant]
     Active Substance: RIBOFLAVIN
     Route: 065
  47. RIBOFLAVIN [Concomitant]
     Active Substance: RIBOFLAVIN
     Route: 065
  48. RIBOFLAVIN [Concomitant]
     Active Substance: RIBOFLAVIN
  49. NIACIN [Concomitant]
     Active Substance: NIACIN
     Indication: Product used for unknown indication
  50. NIACIN [Concomitant]
     Active Substance: NIACIN
     Route: 065
  51. NIACIN [Concomitant]
     Active Substance: NIACIN
     Route: 065
  52. NIACIN [Concomitant]
     Active Substance: NIACIN
  53. COENZYME Q10 [Concomitant]
     Active Substance: DIETARY SUPPLEMENT\UBIDECARENONE
     Indication: Product used for unknown indication
  54. COENZYME Q10 [Concomitant]
     Active Substance: DIETARY SUPPLEMENT\UBIDECARENONE
     Route: 065
  55. COENZYME Q10 [Concomitant]
     Active Substance: DIETARY SUPPLEMENT\UBIDECARENONE
     Route: 065
  56. COENZYME Q10 [Concomitant]
     Active Substance: DIETARY SUPPLEMENT\UBIDECARENONE
  57. THIAMINE [Concomitant]
     Active Substance: THIAMINE
     Indication: Product used for unknown indication
  58. THIAMINE [Concomitant]
     Active Substance: THIAMINE
     Route: 065
  59. THIAMINE [Concomitant]
     Active Substance: THIAMINE
     Route: 065
  60. THIAMINE [Concomitant]
     Active Substance: THIAMINE
  61. CYPROHEPTADINE [Concomitant]
     Active Substance: CYPROHEPTADINE
     Indication: Product used for unknown indication
  62. CYPROHEPTADINE [Concomitant]
     Active Substance: CYPROHEPTADINE
     Route: 065
  63. CYPROHEPTADINE [Concomitant]
     Active Substance: CYPROHEPTADINE
     Route: 065
  64. CYPROHEPTADINE [Concomitant]
     Active Substance: CYPROHEPTADINE
  65. ARGININE [Concomitant]
     Active Substance: ARGININE
     Indication: MELAS syndrome
  66. ARGININE [Concomitant]
     Active Substance: ARGININE
     Route: 065
  67. ARGININE [Concomitant]
     Active Substance: ARGININE
     Route: 065
  68. ARGININE [Concomitant]
     Active Substance: ARGININE

REACTIONS (2)
  - Drug ineffective [Unknown]
  - Off label use [Unknown]
